FAERS Safety Report 21690270 (Version 1)
Quarter: 2022Q4

REPORT INFORMATION
  Report Type: Spontaneous
  Country: US (occurrence: US)
  Receive Date: 20221206
  Receipt Date: 20221206
  Transmission Date: 20230113
  Serious: No
  Sender: FDA-Public Use
  Company Number: US-BRAINTREE LABORATORIES, INC.-2022BTE00866

PATIENT
  Age: 69 Year
  Sex: Female
  Weight: 79.365 kg

DRUGS (3)
  1. SUTAB [Suspect]
     Active Substance: MAGNESIUM SULFATE\POTASSIUM CHLORIDE\SODIUM SULFATE
     Indication: Colonoscopy
     Dosage: 2 X 12 TABLETS, 1X
     Route: 048
     Dates: start: 20221012, end: 20221012
  2. ONDANSETRON [Suspect]
     Active Substance: ONDANSETRON
     Dosage: UNK, TWICE
     Dates: start: 20221012, end: 20221012
  3. PRIMIDONE [Concomitant]
     Active Substance: PRIMIDONE
     Dosage: 50 MG, 3X/DAY

REACTIONS (7)
  - Burning sensation [Unknown]
  - Anorectal discomfort [Unknown]
  - Proctalgia [Not Recovered/Not Resolved]
  - Anorectal swelling [Recovered/Resolved]
  - Back pain [Unknown]
  - Flatulence [Not Recovered/Not Resolved]
  - Wrong technique in product usage process [Recovered/Resolved]

NARRATIVE: CASE EVENT DATE: 20221012
